FAERS Safety Report 7188472-3 (Version None)
Quarter: 2010Q4

REPORT INFORMATION
  Report Type: 
  Country: None (occurrence: None)
  Receive Date: 20101222
  Receipt Date: 20100718
  Transmission Date: 20110411
  Serious: No
  Sender: FDA-Public Use
  Company Number: US-AMGEN-KDL425327

PATIENT

DRUGS (7)
  1. ENBREL [Suspect]
     Indication: PSORIASIS
     Dosage: 50 MG, 2 TIMES/WK
     Route: 058
     Dates: start: 20100712
  2. PREDNISONE [Concomitant]
     Dosage: UNK UNK, UNK
     Route: 048
  3. CALCIPOTRIENE/BETAMETHASONE DIPROPIONATE [Concomitant]
     Dosage: UNK UNK, UNK
     Dates: start: 20100401
  4. HYDROXYZINE HCL [Concomitant]
  5. CLOBETASOL [Concomitant]
     Dosage: UNK UNK, UNK
     Dates: start: 20100424
  6. TRIAMCINOLONE ACETONIDE [Concomitant]
     Dosage: UNK UNK, UNK
     Route: 030
     Dates: start: 20100511
  7. PROTOPIC [Concomitant]
     Dosage: UNK UNK, UNK

REACTIONS (3)
  - PAIN IN EXTREMITY [None]
  - PRURITUS GENERALISED [None]
  - SKIN ULCER [None]
